FAERS Safety Report 17472783 (Version 1)
Quarter: 2020Q1

REPORT INFORMATION
  Report Type: Spontaneous
  Country: US (occurrence: US)
  Receive Date: 20200218
  Receipt Date: 20200218
  Transmission Date: 20200409
  Serious: No
  Sender: FDA-Public Use
  Company Number: None

PATIENT
  Age: 59 Year
  Sex: Female

DRUGS (1)
  1. MAVYRET [Suspect]
     Active Substance: GLECAPREVIR\PIBRENTASVIR
     Dosage: ?          OTHER DOSE:400-100;?
     Route: 048
     Dates: start: 20200210

REACTIONS (4)
  - Gastrointestinal disorder [None]
  - Fatigue [None]
  - Insomnia [None]
  - Mood altered [None]

NARRATIVE: CASE EVENT DATE: 20200218
